FAERS Safety Report 4861866-4 (Version None)
Quarter: 2005Q4

REPORT INFORMATION
  Report Type: 
  Country: None (occurrence: None)
  Receive Date: 20051130
  Receipt Date: 20041119
  Transmission Date: 20060501
  Serious: Yes (Hospitalization, Other)
  Sender: FDA-Public Use
  Company Number: 2004236733US

PATIENT
  Age: 94 Year
  Sex: Female

DRUGS (1)
  1. LINEZOLID TABLET (LINEZOLID) [Suspect]
     Indication: BACTERIAL CULTURE POSITIVE
     Dosage: BID, ORAL
     Route: 048
     Dates: start: 20040901, end: 20040907

REACTIONS (2)
  - LEUKOPENIA [None]
  - THROMBOCYTOPENIA [None]
